FAERS Safety Report 17572278 (Version 1)
Quarter: 2020Q1

REPORT INFORMATION
  Report Type: Spontaneous
  Country: US (occurrence: US)
  Receive Date: 20200317
  Receipt Date: 20200317
  Transmission Date: 20200409
  Serious: Yes (Death)
  Sender: FDA-Public Use
  Company Number: None

PATIENT
  Age: 60 Year
  Sex: Female

DRUGS (3)
  1. STIVARGA [Suspect]
     Active Substance: REGORAFENIB
     Indication: RECTOSIGMOID CANCER
     Route: 048
     Dates: start: 20180206, end: 20200229
  2. STIVARGA [Suspect]
     Active Substance: REGORAFENIB
     Indication: RECTAL CANCER
     Route: 048
     Dates: start: 20180206, end: 20200229
  3. STIVARGA [Suspect]
     Active Substance: REGORAFENIB
     Indication: ANAL CANCER
     Route: 048
     Dates: start: 20180206, end: 20200229

REACTIONS (1)
  - Death [None]

NARRATIVE: CASE EVENT DATE: 20200229
